FAERS Safety Report 15549567 (Version 3)
Quarter: 2019Q1

REPORT INFORMATION
  Report Type: Spontaneous
  Country: DK (occurrence: DK)
  Receive Date: 20181025
  Receipt Date: 20190109
  Transmission Date: 20190417
  Serious: Yes (Death, Hospitalization)
  Sender: FDA-Public Use
  Company Number: DK-ROCHE-2204211

PATIENT
  Age: 26 Year
  Sex: Female

DRUGS (5)
  1. RIVOTRIL [Suspect]
     Active Substance: CLONAZEPAM
     Indication: PRODUCT USED FOR UNKNOWN INDICATION
     Route: 065
     Dates: start: 20180318
  2. FLUOXETINE [Suspect]
     Active Substance: FLUOXETINE HYDROCHLORIDE
     Indication: OBSESSIVE-COMPULSIVE DISORDER
     Route: 048
  3. IMOCLONE [Concomitant]
     Active Substance: ZOPICLONE
     Indication: INSOMNIA
     Dosage: DOSIS: 0,5 TABLET VED BEHOV. STYRKE: 7,5MG
     Route: 048
  4. NITOMAN [Concomitant]
     Active Substance: TETRABENAZINE
     Indication: TOURETTE^S DISORDER
     Dosage: STYRKE: 25 MG
     Route: 048
     Dates: start: 20180325
  5. FRISIUM [Concomitant]
     Active Substance: CLOBAZAM
     Indication: TOURETTE^S DISORDER
     Dosage: DOSIS: 5 MG MORGEN + 10 MG AFTEN STYRKE: 10 MG
     Route: 048

REACTIONS (27)
  - Crying [Unknown]
  - Excessive eye blinking [Unknown]
  - Overdose [Unknown]
  - Confusional state [Unknown]
  - Screaming [Unknown]
  - Scratch [Unknown]
  - Vomiting [Unknown]
  - Intentional self-injury [Unknown]
  - Balance disorder [Unknown]
  - Tic [Unknown]
  - Dysstasia [Unknown]
  - General physical health deterioration [Unknown]
  - Toxicity to various agents [Fatal]
  - Diarrhoea [Unknown]
  - Fall [Unknown]
  - Staring [Unknown]
  - Fatigue [Unknown]
  - Depressed mood [Unknown]
  - Drug intolerance [Unknown]
  - Restlessness [Unknown]
  - Stomatitis [Unknown]
  - Personality change due to a general medical condition [Unknown]
  - Speech disorder [Unknown]
  - Dyspnoea [Unknown]
  - Tremor [Unknown]
  - Insomnia [Unknown]
  - Hyperhidrosis [Unknown]
